FAERS Safety Report 4492731-2 (Version None)
Quarter: 2004Q4

REPORT INFORMATION
  Report Type: 
  Country: None (occurrence: None)
  Receive Date: 20041104
  Receipt Date: 20040506
  Transmission Date: 20050328
  Serious: Yes (Other)
  Sender: FDA-Public Use
  Company Number: 200413494US

PATIENT
  Sex: Male
  Weight: 133 kg

DRUGS (8)
  1. LANTUS [Suspect]
     Indication: DIABETES MELLITUS NON-INSULIN-DEPENDENT
     Dosage: DOSE UNIT: UNITS
     Dates: start: 20031110, end: 20040127
  2. HUMALOG [Concomitant]
     Indication: DIABETES MELLITUS NON-INSULIN-DEPENDENT
     Dosage: DOSE: NOT PROVIDED
  3. PREVACID [Concomitant]
     Indication: PEPTIC ULCER
     Dosage: DOSE: NOT PROVIDED
  4. METFORMIN [Concomitant]
     Indication: DIABETES MELLITUS NON-INSULIN-DEPENDENT
  5. ZESTRIL [Concomitant]
     Indication: HYPERTENSION
  6. REGULAR ILETIN II [Concomitant]
     Indication: DIABETES MELLITUS NON-INSULIN-DEPENDENT
     Dosage: DOSE: NOT PROVIDED
  7. TRIAMCINOLONE [Concomitant]
     Indication: RASH PRURITIC
     Dosage: DOSE: 0.1%
     Route: 061
  8. VASELINE [Concomitant]
     Indication: RASH PRURITIC
     Dosage: DOSE: NOT PROVIDED
     Route: 061

REACTIONS (10)
  - ARTHRALGIA [None]
  - DIFFICULTY IN WALKING [None]
  - INJECTION SITE ERYTHEMA [None]
  - INJECTION SITE INFECTION [None]
  - INJECTION SITE NODULE [None]
  - INJECTION SITE PAIN [None]
  - INJECTION SITE WARMTH [None]
  - PHARMACEUTICAL PRODUCT COMPLAINT [None]
  - PHARYNGITIS [None]
  - SWELLING [None]
